FAERS Safety Report 11085719 (Version 2)
Quarter: 2015Q2

REPORT INFORMATION
  Report Type: Spontaneous
  Country: US (occurrence: US)
  Receive Date: 20150503
  Receipt Date: 20150525
  Transmission Date: 20150821
  Serious: No
  Sender: FDA-Public Use
  Company Number: US-JNJFOC-20130103665

PATIENT
  Age: 21 Year
  Sex: Female
  Weight: 65.77 kg

DRUGS (2)
  1. ALKA-SELTZER PLUS SEVERE COLD AND FLU FORMULA [Suspect]
     Active Substance: ACETAMINOPHEN\CHLORPHENIRAMINE MALEATE\DEXTROMETHORPHAN HYDROBROMIDE\PHENYLEPHRINE HYDROCHLORIDE
     Indication: INFLUENZA
     Route: 065
  2. ORTHO TRI CYCLEN LO [Suspect]
     Active Substance: ETHINYL ESTRADIOL\NORGESTIMATE
     Indication: MENSTRUATION IRREGULAR
     Route: 048
     Dates: start: 2011

REACTIONS (8)
  - Stress [Recovering/Resolving]
  - Ulcer [Recovered/Resolved]
  - Inappropriate schedule of drug administration [Recovered/Resolved]
  - Drug dose omission [Recovered/Resolved]
  - Influenza [Not Recovered/Not Resolved]
  - Drug dose omission [Recovered/Resolved]
  - Depression [Recovering/Resolving]
  - Menstrual disorder [Not Recovered/Not Resolved]

NARRATIVE: CASE EVENT DATE: 20120101
